FAERS Safety Report 10651202 (Version 3)
Quarter: 2015Q1

REPORT INFORMATION
  Report Type: Report from Study
  Country: FR (occurrence: FR)
  Receive Date: 20141215
  Receipt Date: 20150116
  Transmission Date: 20150720
  Serious: Yes (Death, Hospitalization)
  Sender: FDA-Public Use
  Company Number: FR-009507513-1409FRA007308

PATIENT
  Age: 60 Year
  Sex: Female
  Weight: 74 kg

DRUGS (5)
  1. PEMBROLIZUMAB. [Suspect]
     Active Substance: PEMBROLIZUMAB
     Indication: NON-SMALL CELL LUNG CANCER
     Dosage: 2MG/KG, Q3W
     Route: 042
     Dates: start: 20140616, end: 20140707
  2. PEMBROLIZUMAB. [Suspect]
     Active Substance: PEMBROLIZUMAB
     Dosage: 2MG/KG, Q3W
     Route: 042
     Dates: start: 20140728, end: 20140728
  3. NARAMIG [Concomitant]
     Active Substance: NARATRIPTAN HYDROCHLORIDE
     Indication: HEADACHE
     Dosage: TOTAL DAILY DOSE: 2.5 MG, PRN, FORMULATION: PILL
     Route: 048
     Dates: start: 20140419
  4. PEMBROLIZUMAB. [Suspect]
     Active Substance: PEMBROLIZUMAB
     Dosage: 2MG/KG, Q3W
     Route: 042
     Dates: start: 20141013, end: 20141013
  5. LEVOTHYROX [Concomitant]
     Active Substance: LEVOTHYROXINE
     Indication: HYPOTHYROIDISM
     Dosage: 75 MICROGRAM, QD, FORMULATION: PILL
     Route: 048
     Dates: start: 20140419

REACTIONS (2)
  - Malignant neoplasm progression [Recovered/Resolved]
  - Malignant neoplasm progression [Fatal]

NARRATIVE: CASE EVENT DATE: 20140803
